FAERS Safety Report 13817838 (Version 1)
Quarter: 2017Q3

REPORT INFORMATION
  Report Type: Spontaneous
  Country: US (occurrence: US)
  Receive Date: 20170731
  Receipt Date: 20170731
  Transmission Date: 20171127
  Serious: No
  Sender: FDA-Public Use
  Company Number: US-ROCHE-678526

PATIENT
  Age: 51 Year
  Sex: Female

DRUGS (6)
  1. BONIVA [Suspect]
     Active Substance: IBANDRONATE SODIUM
     Indication: OSTEOPOROSIS
     Dosage: FORM:INFUSION
     Route: 042
  2. AMBIEN [Concomitant]
     Active Substance: ZOLPIDEM TARTRATE
  3. SOMA [Concomitant]
     Active Substance: CARISOPRODOL
     Route: 065
  4. COLAX [Concomitant]
     Active Substance: SODIUM PICOSULFATE
     Route: 065
  5. LYRICA [Concomitant]
     Active Substance: PREGABALIN
     Route: 065
  6. PERCOCET [Concomitant]
     Active Substance: ACETAMINOPHEN\OXYCODONE HYDROCHLORIDE
     Route: 065

REACTIONS (3)
  - Cellulitis [Unknown]
  - Vasodilatation [Unknown]
  - Inflammation [Unknown]

NARRATIVE: CASE EVENT DATE: 20091229
